FAERS Safety Report 19289481 (Version 1)
Quarter: 2021Q2

REPORT INFORMATION
  Report Type: Spontaneous
  Country: US (occurrence: US)
  Receive Date: 20210521
  Receipt Date: 20210521
  Transmission Date: 20210717
  Serious: Yes (Other)
  Sender: FDA-Public Use
  Company Number: NVSC2021US109131

PATIENT
  Sex: Female

DRUGS (1)
  1. MAYZENT [Suspect]
     Active Substance: SIPONIMOD
     Indication: RELAPSING-REMITTING MULTIPLE SCLEROSIS
     Dosage: UNK
     Route: 065

REACTIONS (7)
  - Relapsing-remitting multiple sclerosis [Unknown]
  - Facial spasm [Unknown]
  - Speech disorder [Unknown]
  - Drug ineffective [Unknown]
  - Hypoaesthesia [Unknown]
  - Diplopia [Unknown]
  - Dizziness [Unknown]

NARRATIVE: CASE EVENT DATE: 20210510
